FAERS Safety Report 18689686 (Version 1)
Quarter: 2020Q4

REPORT INFORMATION
  Report Type: Spontaneous
  Country: IT (occurrence: IT)
  Receive Date: 20201231
  Receipt Date: 20201231
  Transmission Date: 20210114
  Serious: Yes (Hospitalization)
  Sender: FDA-Public Use
  Company Number: IT-ALLERGAN-2049933US

PATIENT
  Sex: Male
  Weight: 95 kg

DRUGS (3)
  1. DILATREND [Concomitant]
     Active Substance: CARVEDILOL
     Indication: HYPERTENSION
     Route: 048
  2. XYDALBA [Suspect]
     Active Substance: DALBAVANCIN HYDROCHLORIDE
     Indication: CELLULITIS
     Dosage: 1500 MG, SINGLE
     Route: 042
     Dates: start: 20201203, end: 20201203
  3. NORVASC [Concomitant]
     Active Substance: AMLODIPINE BESYLATE
     Indication: HYPERTENSION
     Route: 048

REACTIONS (2)
  - Hypertensive crisis [Recovered/Resolved]
  - Dyspnoea [Recovered/Resolved]

NARRATIVE: CASE EVENT DATE: 20201203
